FAERS Safety Report 8056654-4 (Version None)
Quarter: 2012Q1

REPORT INFORMATION
  Report Type: 
  Country: None (occurrence: None)
  Receive Date: 20120119
  Receipt Date: 20110222
  Transmission Date: 20120608
  Serious: No
  Sender: FDA-Public Use
  Company Number: US-SANOFI-AVENTIS-2011SA013000

PATIENT
  Sex: Male

DRUGS (7)
  1. LEVOTHYROXINE SODIUM [Concomitant]
  2. TIKOSYN [Concomitant]
  3. COUMADIN [Concomitant]
  4. CALCIUM [Concomitant]
  5. LASIX [Suspect]
     Route: 048
     Dates: start: 20110101
  6. BISOPROLOL FUMARATE [Suspect]
     Dosage: DOSAGE: 2.5 MG IN MORNING AND 5 MG IN EVENING
     Route: 065
     Dates: start: 20110101
  7. VITAMIN D [Concomitant]

REACTIONS (1)
  - BLOOD PRESSURE INCREASED [None]
